FAERS Safety Report 8388775-0 (Version None)
Quarter: 2012Q2

REPORT INFORMATION
  Report Type: 
  Country: None (occurrence: None)
  Receive Date: 20120528
  Receipt Date: 20120515
  Transmission Date: 20120825
  Serious: Yes (Death, Other)
  Sender: FDA-Public Use
  Company Number: FR-BRISTOL-MYERS SQUIBB COMPANY-16627739

PATIENT
  Age: 1 Day
  Sex: Female
  Weight: 1 kg

DRUGS (3)
  1. VINCRISTINE [Suspect]
     Dosage: DAY 1 + 14
     Route: 064
  2. IFOSFAMIDE [Suspect]
     Dosage: 1DF= 5G/M3
     Route: 064
  3. DACTINOMYCIN [Suspect]
     Route: 064

REACTIONS (5)
  - ANURIA [None]
  - FOETAL GROWTH RESTRICTION [None]
  - FOETAL DISTRESS SYNDROME [None]
  - PREMATURE BABY [None]
  - INTRAVENTRICULAR HAEMORRHAGE [None]
